FAERS Safety Report 20642458 (Version 1)
Quarter: 2022Q1

REPORT INFORMATION
  Report Type: Spontaneous
  Country: US (occurrence: None)
  Receive Date: 20220325
  Receipt Date: 20220325
  Transmission Date: 20220423
  Serious: Yes (Hospitalization)
  Sender: FDA-Public Use
  Company Number: None

PATIENT
  Age: 63 Year
  Sex: Female
  Weight: 84.1 kg

DRUGS (1)
  1. TECHNETIUM TC-99M TILMANOCEPT [Suspect]
     Active Substance: TECHNETIUM TC-99M TILMANOCEPT
     Dosage: OTHER QUANTITY : .55 MCI;?
     Dates: end: 20220210

REACTIONS (13)
  - Neck pain [None]
  - Erythema [None]
  - Discomfort [None]
  - Seroma [None]
  - Incision site swelling [None]
  - Pyrexia [None]
  - Odynophagia [None]
  - Cellulitis [None]
  - Superinfection [None]
  - Abscess [None]
  - Postoperative wound infection [None]
  - Purulent discharge [None]
  - Gram stain positive [None]

NARRATIVE: CASE EVENT DATE: 20220226
